FAERS Safety Report 12315864 (Version 3)
Quarter: 2016Q2

REPORT INFORMATION
  Report Type: Spontaneous
  Country: ES (occurrence: ES)
  Receive Date: 20160428
  Receipt Date: 20160520
  Transmission Date: 20160815
  Serious: Yes (Death, Hospitalization)
  Sender: FDA-Public Use
  Company Number: ES-SEATTLE GENETICS-2016SGN00674

PATIENT

DRUGS (1)
  1. ADCETRIS [Suspect]
     Active Substance: BRENTUXIMAB VEDOTIN
     Indication: HODGKIN^S DISEASE NODULAR SCLEROSIS
     Dosage: 1.8 MG/KG, UNK
     Route: 065
     Dates: start: 201210, end: 201210

REACTIONS (5)
  - Pyrexia [Unknown]
  - Diarrhoea [Unknown]
  - Acute respiratory failure [Fatal]
  - Sense of oppression [Unknown]
  - Dyspnoea [Unknown]

NARRATIVE: CASE EVENT DATE: 201210
